FAERS Safety Report 6793542-5 (Version None)
Quarter: 2010Q2

REPORT INFORMATION
  Report Type: 
  Country: None (occurrence: None)
  Receive Date: 20100624
  Receipt Date: 20090126
  Transmission Date: 20101027
  Serious: Yes (Other)
  Sender: FDA-Public Use
  Company Number: US-PFIZER INC-2008101410

PATIENT
  Age: 45 Year
  Sex: Female
  Weight: 77.098 kg

DRUGS (2)
  1. RELPAX [Suspect]
     Indication: MIGRAINE
     Dosage: 40 MG, UNK
  2. ORAL CONTRACEPTIVE NOS [Concomitant]

REACTIONS (5)
  - DRUG INEFFECTIVE [None]
  - HYPERACUSIS [None]
  - MIGRAINE [None]
  - MOBILITY DECREASED [None]
  - PHOTOPHOBIA [None]
